FAERS Safety Report 16594449 (Version 1)
Quarter: 2019Q3

REPORT INFORMATION
  Report Type: Spontaneous
  Country: BY (occurrence: BY)
  Receive Date: 20190718
  Receipt Date: 20190718
  Transmission Date: 20191004
  Serious: Yes (Hospitalization)
  Sender: FDA-Public Use
  Company Number: PHHY2019BY163576

PATIENT
  Age: 30 Year
  Sex: Female
  Weight: 41 kg

DRUGS (6)
  1. FLUCONAZOLE. [Concomitant]
     Active Substance: FLUCONAZOLE
     Indication: PRODUCT USED FOR UNKNOWN INDICATION
     Dosage: UNK
     Route: 065
  2. CETIRIZINUM [Concomitant]
     Indication: PRODUCT USED FOR UNKNOWN INDICATION
     Dosage: UNK
     Route: 048
  3. CLEMASTINUM [Concomitant]
     Active Substance: CLEMASTINE FUMARATE
     Indication: PRODUCT USED FOR UNKNOWN INDICATION
     Dosage: UNK
     Route: 042
  4. PURINETHOL [Concomitant]
     Active Substance: MERCAPTOPURINE
     Indication: PRODUCT USED FOR UNKNOWN INDICATION
     Dosage: UNK
     Route: 065
  5. TASIGNA [Suspect]
     Active Substance: NILOTINIB
     Indication: ACUTE LYMPHOCYTIC LEUKAEMIA
     Dosage: 300 MG, BID (TWO PER DAY)
     Route: 048
     Dates: start: 20190621, end: 20190710
  6. PREDNISOLONUM [Concomitant]
     Active Substance: PREDNISOLONE
     Indication: PRODUCT USED FOR UNKNOWN INDICATION
     Dosage: UNK
     Route: 042

REACTIONS (3)
  - Pruritus [Unknown]
  - Blood bilirubin increased [Unknown]
  - Rash papular [Unknown]

NARRATIVE: CASE EVENT DATE: 20190623
